FAERS Safety Report 5094015-0 (Version None)
Quarter: 2006Q3

REPORT INFORMATION
  Report Type: 
  Country: None (occurrence: None)
  Receive Date: 20060728
  Receipt Date: 20060707
  Transmission Date: 20061208
  Serious: No
  Sender: FDA-Public Use
  Company Number: 252708

PATIENT
  Age: 66 Year
  Sex: Female
  Weight: 64.4 kg

DRUGS (6)
  1. LEVEMIR [Suspect]
     Indication: DIABETES MELLITUS INSULIN-DEPENDENT
     Dosage: 18 IU, QD, SUBCUTANEOUS
     Route: 058
     Dates: start: 20060131
  2. HUMALOG [Concomitant]
  3. ALTACE [Concomitant]
  4. PROTONIX [Concomitant]
  5. LEVOXYL [Concomitant]
  6. ALBUTEROL [Concomitant]

REACTIONS (1)
  - OEDEMA [None]
